FAERS Safety Report 7473267-3 (Version None)
Quarter: 2011Q2

REPORT INFORMATION
  Report Type: 
  Country: None (occurrence: None)
  Receive Date: 20110511
  Receipt Date: 20110509
  Transmission Date: 20111010
  Serious: Yes (Hospitalization)
  Sender: FDA-Public Use
  Company Number: US-ABBOTT-11P-163-0724367-00

PATIENT
  Sex: Female
  Weight: 74.91 kg

DRUGS (10)
  1. CELEBREX [Concomitant]
     Indication: RHEUMATOID ARTHRITIS
  2. UNNAMED CHOLESTEROL MEDICATION [Concomitant]
     Indication: BLOOD CHOLESTEROL INCREASED
  3. PRILOSEC [Concomitant]
     Indication: GASTRIC DISORDER
  4. ASPIRIN [Concomitant]
     Indication: PRODUCT USED FOR UNKNOWN INDICATION
  5. HUMIRA [Suspect]
     Indication: RHEUMATOID ARTHRITIS
     Dates: start: 20081201, end: 20100901
  6. UNNAMED BLOOD PRESSURE MEDICATION [Concomitant]
     Indication: HYPERTENSION
  7. METHOTREXATE [Concomitant]
     Indication: RHEUMATOID ARTHRITIS
     Dates: end: 20100901
  8. ARAVA [Concomitant]
     Indication: RHEUMATOID ARTHRITIS
     Dates: start: 20100901, end: 20101101
  9. SYNTHROID [Concomitant]
     Indication: HYPOTHYROIDISM
  10. POTASSIUM [Concomitant]
     Indication: HYPOKALAEMIA

REACTIONS (8)
  - RHEUMATOID ARTHRITIS [None]
  - JOINT SWELLING [None]
  - HIP ARTHROPLASTY [None]
  - IMMUNODEFICIENCY [None]
  - ARTHRITIS INFECTIVE [None]
  - KIDNEY INFECTION [None]
  - ABASIA [None]
  - KNEE ARTHROPLASTY [None]
